FAERS Safety Report 5741323-3 (Version None)
Quarter: 2008Q2

REPORT INFORMATION
  Report Type: 
  Country: None (occurrence: None)
  Receive Date: 20080515
  Receipt Date: 20080508
  Transmission Date: 20081010
  Serious: Yes (Hospitalization)
  Sender: FDA-Public Use
  Company Number: 2008SP008718

PATIENT
  Age: 59 Year
  Sex: Female
  Weight: 74 kg

DRUGS (1)
  1. TEMODAR [Suspect]
     Indication: ASTROCYTOMA, LOW GRADE
     Dosage: 75 MG/M2 QD
     Dates: start: 20080311, end: 20080421

REACTIONS (13)
  - ALOPECIA [None]
  - BALANCE DISORDER [None]
  - BRAIN OEDEMA [None]
  - CONSTIPATION [None]
  - DEHYDRATION [None]
  - DIZZINESS [None]
  - DRUG TOXICITY [None]
  - FATIGUE [None]
  - INFECTION [None]
  - POLLAKIURIA [None]
  - SINUS TACHYCARDIA [None]
  - UPPER RESPIRATORY TRACT INFECTION [None]
  - VOMITING [None]
